FAERS Safety Report 8065505-3 (Version None)
Quarter: 2012Q1

REPORT INFORMATION
  Report Type: 
  Country: None (occurrence: None)
  Receive Date: 20120124
  Receipt Date: 20120116
  Transmission Date: 20120608
  Serious: Yes (Other)
  Sender: FDA-Public Use
  Company Number: US-ASTELLAS-2012US000671

PATIENT

DRUGS (2)
  1. VINFLUNINE [Suspect]
     Indication: NEOPLASM
     Dosage: 250 MG/M2, CYCLIC
     Route: 042
  2. ERLOTINIB HYDROCHLORIDE [Suspect]
     Indication: NEOPLASM
     Dosage: 75 MG, UNKNOWN/D
     Route: 048

REACTIONS (1)
  - NEUTROPENIA [None]
